FAERS Safety Report 24905406 (Version 1)
Quarter: 2025Q1

REPORT INFORMATION
  Report Type: Spontaneous
  Country: US (occurrence: US)
  Receive Date: 20250130
  Receipt Date: 20250130
  Transmission Date: 20250409
  Serious: No
  Sender: Tarsus Pharmaceuticals
  Company Number: US-TARSUS PHARMACEUTICALS-TSP-US-2025-000060

PATIENT
  Age: 5 Decade
  Sex: Female

DRUGS (1)
  1. XDEMVY [Suspect]
     Active Substance: LOTILANER
     Indication: Product used for unknown indication
     Route: 065

REACTIONS (4)
  - Dry eye [Unknown]
  - Oropharyngeal pain [Unknown]
  - Cough [Unknown]
  - Upper-airway cough syndrome [Unknown]
